FAERS Safety Report 14310628 (Version 1)
Quarter: 2017Q4

REPORT INFORMATION
  Report Type: Spontaneous
  Country: CN (occurrence: CN)
  Receive Date: 20171220
  Receipt Date: 20171220
  Transmission Date: 20180321
  Serious: Yes (Life-Threatening, Hospitalization, Other)
  Sender: FDA-Public Use
  Company Number: CN-VISTAPHARM, INC.-VER201712-001375

PATIENT
  Age: 25 Year
  Sex: Female

DRUGS (1)
  1. HYDROCODONE AND ACETAMINOPHEN [Suspect]
     Active Substance: ACETAMINOPHEN\HYDROCODONE
     Indication: HEADACHE

REACTIONS (6)
  - Hypokalaemia [Recovered/Resolved]
  - Renal tubular acidosis [Unknown]
  - Rhabdomyolysis [Unknown]
  - Nephropathy toxic [Unknown]
  - Autoimmune haemolytic anaemia [Unknown]
  - Tubulointerstitial nephritis [Unknown]
